FAERS Safety Report 11910174 (Version 11)
Quarter: 2020Q4

REPORT INFORMATION
  Report Type: Spontaneous
  Country: US (occurrence: US)
  Receive Date: 20160112
  Receipt Date: 20201130
  Transmission Date: 20210113
  Serious: Yes (Other)
  Sender: FDA-Public Use
  Company Number: US-PFIZER INC-2015477841

PATIENT
  Age: 60 Year
  Sex: Female
  Weight: 86.17 kg

DRUGS (4)
  1. LYRICA [Suspect]
     Active Substance: PREGABALIN
     Indication: FIBROMYALGIA
     Dosage: 125 MG, 1X/DAY (5 PILLS 25 MG AT BEDTIME)
     Dates: start: 2015
  2. HYDROCODONE [Concomitant]
     Active Substance: HYDROCODONE
     Indication: FIBROMYALGIA
     Dosage: UNK
  3. LYRICA [Suspect]
     Active Substance: PREGABALIN
     Indication: MYALGIA
     Dosage: 150 MG, 2X/DAY,(25 MG , TAKE 6 CAPSULE TWICE DAILY)
  4. LYRICA [Suspect]
     Active Substance: PREGABALIN
     Indication: POST LAMINECTOMY SYNDROME

REACTIONS (2)
  - Breast cancer female [Unknown]
  - Hypersomnia [Unknown]
